FAERS Safety Report 22519925 (Version 1)
Quarter: 2023Q2

REPORT INFORMATION
  Report Type: Spontaneous
  Country: BR (occurrence: BR)
  Receive Date: 20230605
  Receipt Date: 20230605
  Transmission Date: 20230722
  Serious: Yes (Hospitalization, Other)
  Sender: FDA-Public Use
  Company Number: BR-KOREA IPSEN Pharma-2023-12814

PATIENT
  Sex: Male

DRUGS (3)
  1. CABOMETYX [Suspect]
     Active Substance: CABOZANTINIB S-MALATE
     Indication: Renal cell carcinoma
     Dosage: 60 MG
     Route: 065
  2. CABOMETYX [Suspect]
     Active Substance: CABOZANTINIB S-MALATE
     Dosage: 40 MG, 1 PILL 2 DAYS ON AND 1 DAY OFF
     Route: 065
  3. NIVOLUMAB [Concomitant]
     Active Substance: NIVOLUMAB
     Dosage: UNK

REACTIONS (6)
  - Sepsis [Unknown]
  - Skin lesion [Unknown]
  - Perineal rash [Not Recovered/Not Resolved]
  - Condition aggravated [Unknown]
  - Stomatitis [Not Recovered/Not Resolved]
  - Off label use [Unknown]
